FAERS Safety Report 11717315 (Version 2)
Quarter: 2015Q4

REPORT INFORMATION
  Report Type: Spontaneous
  Country: JP (occurrence: JP)
  Receive Date: 20151109
  Receipt Date: 20151223
  Transmission Date: 20160304
  Serious: Yes (Death, Hospitalization)
  Sender: FDA-Public Use
  Company Number: JP-ROCHE-1657245

PATIENT
  Age: 79 Year
  Sex: Female
  Weight: 30 kg

DRUGS (11)
  1. MICARDIS [Concomitant]
     Active Substance: TELMISARTAN
     Indication: HYPERTENSION
     Route: 048
     Dates: end: 20151015
  2. ZOMETA [Concomitant]
     Active Substance: ZOLEDRONIC ACID
     Indication: LUNG ADENOCARCINOMA
     Dosage: DOSAGE IS UNCERTAIN.
     Route: 041
     Dates: start: 20150129, end: 20150917
  3. MAGNESIUM OXIDE. [Concomitant]
     Active Substance: MAGNESIUM OXIDE
     Indication: CONSTIPATION
     Route: 048
     Dates: end: 20151015
  4. AVASTIN [Suspect]
     Active Substance: BEVACIZUMAB
     Indication: LUNG ADENOCARCINOMA
     Dosage: COMPLETED TREATMENT CYCLE NUMBER 2
     Route: 041
     Dates: start: 20150820, end: 20150917
  5. TARCEVA [Suspect]
     Active Substance: ERLOTINIB HYDROCHLORIDE
     Indication: LUNG ADENOCARCINOMA
     Route: 048
     Dates: start: 20150209, end: 20151013
  6. EDIROL [Concomitant]
     Active Substance: ELDECALCITOL
     Indication: HYPERTENSION
     Route: 048
     Dates: end: 20151015
  7. SENNOSIDE [Concomitant]
     Active Substance: SENNOSIDES
     Route: 048
     Dates: end: 20151015
  8. MINOMYCIN [Concomitant]
     Active Substance: MINOCYCLINE HYDROCHLORIDE
     Route: 048
     Dates: end: 20151015
  9. PROTECADIN [Concomitant]
     Active Substance: LAFUTIDINE
     Indication: GASTRIC ULCER
     Route: 048
     Dates: end: 20151015
  10. CELECOX [Concomitant]
     Active Substance: CELECOXIB
     Route: 048
     Dates: end: 20151015
  11. XYZAL [Concomitant]
     Active Substance: LEVOCETIRIZINE DIHYDROCHLORIDE
     Route: 048
     Dates: end: 20151015

REACTIONS (2)
  - Lung adenocarcinoma [Fatal]
  - Pancreatitis acute [Fatal]

NARRATIVE: CASE EVENT DATE: 20151013
